FAERS Safety Report 19274259 (Version 1)
Quarter: 2021Q2

REPORT INFORMATION
  Report Type: Spontaneous
  Country: US (occurrence: US)
  Receive Date: 20210519
  Receipt Date: 20210519
  Transmission Date: 20210717
  Serious: Yes (Other)
  Sender: FDA-Public Use
  Company Number: None

PATIENT
  Age: 51 Year
  Sex: Female
  Weight: 80 kg

DRUGS (1)
  1. METRONIDAZOLE. [Suspect]
     Active Substance: METRONIDAZOLE
     Indication: FUNGAL INFECTION
     Route: 048
     Dates: start: 20210430, end: 20210504

REACTIONS (1)
  - Rash [None]

NARRATIVE: CASE EVENT DATE: 20210518
